FAERS Safety Report 9485981 (Version 1)
Quarter: 2013Q3

REPORT INFORMATION
  Report Type: Spontaneous
  Country: US (occurrence: None)
  Receive Date: 20130827
  Receipt Date: 20130827
  Transmission Date: 20140515
  Serious: Yes (Other)
  Sender: FDA-Public Use
  Company Number: None

PATIENT
  Age: 67 Year
  Sex: Female
  Weight: 68.04 kg

DRUGS (1)
  1. TUDORZA PRESSAIR [Suspect]
     Indication: CHRONIC OBSTRUCTIVE PULMONARY DISEASE
     Dosage: ONE PUFF  BID
     Route: 048
     Dates: start: 20130625, end: 20130822

REACTIONS (5)
  - Rash [None]
  - Local swelling [None]
  - Joint swelling [None]
  - Oedema peripheral [None]
  - Weight increased [None]
